FAERS Safety Report 24947067 (Version 8)
Quarter: 2025Q3

REPORT INFORMATION
  Report Type: Spontaneous
  Country: JP (occurrence: JP)
  Receive Date: 20250210
  Receipt Date: 20250710
  Transmission Date: 20251021
  Serious: Yes (Other)
  Sender: AMGEN
  Company Number: JP-AMGEN-JPNSP2025009526

PATIENT
  Age: 34 Year
  Sex: Male
  Weight: 71 kg

DRUGS (5)
  1. TEPEZZA [Suspect]
     Active Substance: TEPROTUMUMAB-TRBW
     Indication: Endocrine ophthalmopathy
     Dosage: 10 MILLIGRAM/KILOGRAM, Q3WK (INTRAVENOUS DRIP INFUSION)
     Route: 040
     Dates: start: 20241220
  2. TEPEZZA [Suspect]
     Active Substance: TEPROTUMUMAB-TRBW
     Dosage: UNK UNK, Q3WK (SECOND INFUSION) (INTRAVENOUS DRIP INFUSION)
     Route: 040
  3. ALPHAGAN P [Concomitant]
     Active Substance: BRIMONIDINE TARTRATE
     Indication: Endocrine ophthalmopathy
     Route: 047
     Dates: start: 20231028
  4. DORZOLAMIDE HYDROCHLORIDE\TIMOLOL MALEATE [Concomitant]
     Active Substance: DORZOLAMIDE HYDROCHLORIDE\TIMOLOL MALEATE
     Indication: Endocrine ophthalmopathy
     Route: 047
  5. XALATAN [Concomitant]
     Active Substance: LATANOPROST
     Indication: Endocrine ophthalmopathy
     Route: 047

REACTIONS (10)
  - Haematochezia [Recovering/Resolving]
  - Abdominal pain upper [Recovered/Resolved]
  - Anal fissure [Unknown]
  - Foetal haemoglobin increased [Unknown]
  - Haemoglobin decreased [Unknown]
  - Blood uric acid decreased [Unknown]
  - Blood glucose increased [Unknown]
  - Blood urea increased [Unknown]
  - Aspartate aminotransferase increased [Unknown]
  - Blood thyroid stimulating hormone increased [Unknown]

NARRATIVE: CASE EVENT DATE: 20250105
